FAERS Safety Report 20584175 (Version 1)
Quarter: 2022Q1

REPORT INFORMATION
  Report Type: Spontaneous
  Country: US (occurrence: US)
  Receive Date: 20220311
  Receipt Date: 20220311
  Transmission Date: 20220423
  Serious: Yes (Hospitalization)
  Sender: FDA-Public Use
  Company Number: US-MYLANLABS-2022M1018826

PATIENT
  Age: 22 Year
  Sex: Male

DRUGS (1)
  1. HEPARIN [Suspect]
     Active Substance: HEPARIN SODIUM
     Indication: Anticoagulant therapy
     Dosage: UNK
     Route: 065

REACTIONS (4)
  - Heparin-induced thrombocytopenia [Unknown]
  - Pulmonary hypertension [Unknown]
  - Atrial thrombosis [Unknown]
  - Venous thrombosis [Unknown]
